FAERS Safety Report 8576960-4 (Version None)
Quarter: 2012Q3

REPORT INFORMATION
  Report Type: 
  Country: None (occurrence: None)
  Receive Date: 20120807
  Receipt Date: 20120723
  Transmission Date: 20120928
  Serious: Yes (Other)
  Sender: FDA-Public Use
  Company Number: US-ARROW-2012-13514

PATIENT
  Age: 68 Year
  Sex: Male

DRUGS (1)
  1. GEMCITABINE [Suspect]
     Indication: BLADDER CANCER
     Dosage: UNK
     Route: 065

REACTIONS (4)
  - ACUTE PULMONARY OEDEMA [None]
  - PLEURAL EFFUSION [None]
  - PNEUMONITIS [None]
  - PULMONARY TOXICITY [None]
